FAERS Safety Report 9511684 (Version 2)
Quarter: 2013Q4

REPORT INFORMATION
  Report Type: Report from Study
  Country: JP (occurrence: JP)
  Receive Date: 20130910
  Receipt Date: 20131008
  Transmission Date: 20140711
  Serious: Yes (Other)
  Sender: FDA-Public Use
  Company Number: JP-OTSUKA-JP-2013-13515

PATIENT
  Age: 75 Year
  Sex: Male
  Weight: 60.4 kg

DRUGS (14)
  1. SAMSCA [Suspect]
     Indication: FLUID RETENTION
     Dosage: 3.75 MG MILLIGRAM(S), QAM
     Route: 048
     Dates: start: 20130722, end: 20130722
  2. SAMSCA [Suspect]
     Dosage: 7.5 MG MILLIGRAM(S), QAM
     Route: 048
     Dates: start: 20130723, end: 20130805
  3. AMLODIN [Concomitant]
     Dosage: 5 MG MILLIGRAM(S), DAILY DOSE
     Route: 048
     Dates: end: 20130724
  4. ALDACTONE A [Concomitant]
     Indication: CARDIAC FAILURE
     Dosage: 25 MG MILLIGRAM(S), DAILY DOSE
     Route: 048
     Dates: end: 20130724
  5. ARTIST [Concomitant]
     Indication: CARDIAC FAILURE
     Dosage: 20 MG MILLIGRAM(S), DAILY DOSE
     Route: 048
  6. LASIX [Concomitant]
     Indication: CARDIAC FAILURE
     Dosage: 20 MG MILLIGRAM(S), DAILY DOSE
     Route: 048
  7. TANATRIL [Concomitant]
     Indication: CARDIAC FAILURE
     Dosage: 2.5 MG MILLIGRAM(S), DAILY DOSE
     Route: 048
  8. PIMOBENDAN [Concomitant]
     Indication: CARDIAC FAILURE
     Dosage: 1.25 MG MILLIGRAM(S), DAILY DOSE
     Route: 048
  9. WARFARIN K [Concomitant]
     Indication: CARDIAC FAILURE
     Dosage: 2.5 MG MILLIGRAM(S), DAILY DOSE
     Route: 048
  10. LANTUS [Concomitant]
     Dosage: 0.03 ML MILLILITRE(S), DAILY DOSE
     Route: 058
  11. LASIX [Concomitant]
     Indication: CARDIAC FAILURE
     Dosage: 40 MG MILLIGRAM(S), DAILY DOSE
     Route: 042
  12. FEBURIC [Concomitant]
     Dosage: 10 MG MILLIGRAM(S), DAILY DOSE
     Route: 048
  13. HANP [Concomitant]
     Indication: CARDIAC FAILURE
     Dosage: 4800 MCG, DAILY DOSE
     Route: 041
  14. DOBUTREX [Concomitant]
     Indication: CARDIAC FAILURE
     Dosage: 216 MG MILLIGRAM(S), DAILY DOSE
     Route: 041

REACTIONS (3)
  - Blood urea increased [Unknown]
  - Thirst [Recovered/Resolved]
  - Blood potassium increased [Unknown]
